FAERS Safety Report 9926124 (Version 4)
Quarter: 2015Q1

REPORT INFORMATION
  Report Type: Report from Study
  Country: US (occurrence: US)
  Receive Date: 20140226
  Receipt Date: 20150203
  Transmission Date: 20150721
  Serious: Yes (Other)
  Sender: FDA-Public Use
  Company Number: US-PFIZER INC-2014047933

PATIENT
  Age: 61 Year
  Sex: Female
  Weight: 81 kg

DRUGS (15)
  1. PEGFILGRASTIM [Concomitant]
     Active Substance: PEGFILGRASTIM
     Indication: INFECTION PROPHYLAXIS
     Dosage: UNK
     Dates: start: 20131120, end: 20131120
  2. CLINDAMYCIN [Concomitant]
     Active Substance: CLINDAMYCIN\CLINDAMYCIN PHOSPHATE
     Dosage: UNK
     Dates: start: 20131201
  3. IBUPROFEN. [Concomitant]
     Active Substance: IBUPROFEN
  4. PHILLIPS STOOL SOFTENER [Concomitant]
     Dosage: UNK
     Dates: start: 201308
  5. DOXORUBICIN HCL [Suspect]
     Active Substance: DOXORUBICIN HYDROCHLORIDE
     Indication: LEIOMYOSARCOMA METASTATIC
     Dosage: 75 MG/M2, TOTAL DOSE 142.5 MG, CYCLE 2
     Route: 040
     Dates: start: 20131023, end: 20131113
  6. CRESTOR [Concomitant]
     Active Substance: ROSUVASTATIN CALCIUM
     Dosage: UNK
     Dates: start: 20110103
  7. LISINOPRIL. [Concomitant]
     Active Substance: LISINOPRIL
  8. CYMBALTA [Concomitant]
     Active Substance: DULOXETINE HYDROCHLORIDE
     Dosage: UNK
     Dates: start: 200603
  9. FOLIC ACID. [Concomitant]
     Active Substance: FOLIC ACID
     Dosage: UNK
     Dates: start: 201307
  10. CENTRUM SILVER [Concomitant]
     Active Substance: VITAMINS
  11. LOPRESSOR [Concomitant]
     Active Substance: METOPROLOL TARTRATE
     Dosage: UNK
     Dates: start: 20110103
  12. PANTOPRAZOLE [Concomitant]
     Active Substance: PANTOPRAZOLE SODIUM
     Dosage: UNK
     Dates: start: 201306
  13. DOXYCYCLINE. [Concomitant]
     Active Substance: DOXYCYCLINE
     Dosage: UNK
     Dates: start: 20131130, end: 20131212
  14. BACTROBAN [Concomitant]
     Active Substance: MUPIROCIN\MUPIROCIN CALCIUM
     Dosage: UNK
     Dates: start: 20131201, end: 20131226
  15. SUSTAINE ULTRA [Concomitant]
     Dosage: UNK
     Dates: start: 200812

REACTIONS (2)
  - Post procedural infection [Recovered/Resolved]
  - Fistula [Recovered/Resolved]

NARRATIVE: CASE EVENT DATE: 20131203
